FAERS Safety Report 5304901-1 (Version None)
Quarter: 2007Q2

REPORT INFORMATION
  Report Type: 
  Country: None (occurrence: None)
  Receive Date: 20070416
  Receipt Date: 20070402
  Transmission Date: 20071010
  Serious: Yes (Other)
  Sender: FDA-Public Use
  Company Number: MC200700257

PATIENT
  Sex: Female

DRUGS (4)
  1. ANGIOMAX [Suspect]
     Indication: PERCUTANEOUS CORONARY INTERVENTION
     Dosage: 75 MG/KG, BOLUS, IV BOLUS,
     Route: 040
     Dates: start: 20070320, end: 20070320
  2. ANGIOMAX [Suspect]
     Dosage: 1.75 MG//KG, HR INTRAVENOUS
     Route: 042
     Dates: start: 20070320, end: 20070320
  3. PLAVIX [Concomitant]
  4. INTEGRILIN [Concomitant]

REACTIONS (4)
  - IN-STENT ARTERIAL RESTENOSIS [None]
  - PAIN IN JAW [None]
  - STENT OCCLUSION [None]
  - THROMBOSIS IN DEVICE [None]
